FAERS Safety Report 7345532-1 (Version None)
Quarter: 2011Q1

REPORT INFORMATION
  Report Type: 
  Country: None (occurrence: None)
  Receive Date: 20110310
  Receipt Date: 20110308
  Transmission Date: 20110831
  Serious: Yes (Death, Hospitalization)
  Sender: FDA-Public Use
  Company Number: FR-MERCK-1011FRA00116

PATIENT
  Age: 39 Year
  Sex: Male
  Weight: 64 kg

DRUGS (3)
  1. LOPINAVIR AND RITONAVIR [Concomitant]
     Route: 048
     Dates: end: 20101014
  2. ISENTRESS [Suspect]
     Indication: HIV INFECTION
     Route: 048
     Dates: start: 20100623, end: 20101014
  3. TENOFOVIR DISOPROXIL FUMARATE [Concomitant]
     Route: 048
     Dates: end: 20101014

REACTIONS (5)
  - MULTI-ORGAN FAILURE [None]
  - HEPATIC FAILURE [None]
  - SEPTIC SHOCK [None]
  - LYMPHADENOPATHY [None]
  - ADVERSE EVENT [None]
